FAERS Safety Report 5913534-5 (Version None)
Quarter: 2008Q4

REPORT INFORMATION
  Report Type: 
  Country: None (occurrence: None)
  Receive Date: 20081006
  Receipt Date: 20080930
  Transmission Date: 20090506
  Serious: Yes (Hospitalization)
  Sender: FDA-Public Use
  Company Number: 2008SP018955

PATIENT
  Age: 58 Year
  Sex: Female

DRUGS (8)
  1. PEG-INTRON [Suspect]
     Indication: HEPATITIS C
  2. RIBAVIRIN [Suspect]
     Indication: HEPATITIS C
     Dosage: 600 MG; BID
  3. METOPROLOL TARTRATE [Concomitant]
  4. ZANTAC [Concomitant]
  5. OXYCONTIN [Concomitant]
  6. HYDROCODONE BITARTRATE [Concomitant]
  7. VALIUM [Concomitant]
  8. NORTRIPTYLINE HCL [Concomitant]

REACTIONS (10)
  - AGGRESSION [None]
  - ASPARTATE AMINOTRANSFERASE INCREASED [None]
  - CANDIDIASIS [None]
  - CONFUSIONAL STATE [None]
  - DELUSION [None]
  - DRUG SCREEN POSITIVE [None]
  - FALL [None]
  - GASTROOESOPHAGEAL REFLUX DISEASE [None]
  - LARYNGITIS [None]
  - TOXICOLOGIC TEST ABNORMAL [None]
